FAERS Safety Report 12091532 (Version 4)
Quarter: 2016Q4

REPORT INFORMATION
  Report Type: Report from Study
  Country: US (occurrence: US)
  Receive Date: 20160218
  Receipt Date: 20161229
  Transmission Date: 20170206
  Serious: No
  Sender: FDA-Public Use
  Company Number: PHHY2016US019190

PATIENT
  Age: 39 Year
  Sex: Female

DRUGS (1)
  1. GILENYA [Suspect]
     Active Substance: FINGOLIMOD HYDROCHLORIDE
     Indication: MULTIPLE SCLEROSIS
     Dosage: QD
     Route: 048

REACTIONS (8)
  - Blood sodium decreased [Unknown]
  - Monocyte count increased [Unknown]
  - Lymphocyte count decreased [Recovered/Resolved]
  - Haematocrit decreased [Unknown]
  - White blood cell count decreased [Recovered/Resolved]
  - Protein total increased [Unknown]
  - Arthralgia [Unknown]
  - Blood bilirubin decreased [Unknown]

NARRATIVE: CASE EVENT DATE: 20140123
